FAERS Safety Report 8399615-8 (Version None)
Quarter: 2012Q2

REPORT INFORMATION
  Report Type: 
  Country: None (occurrence: None)
  Receive Date: 20120531
  Receipt Date: 20120524
  Transmission Date: 20120825
  Serious: Yes (Death, Other)
  Sender: FDA-Public Use
  Company Number: GB-ROCHE-1072302

PATIENT
  Sex: Female
  Weight: 88 kg

DRUGS (5)
  1. MABTHERA [Suspect]
     Dosage: DATE OF LAST DOSE PRIOR TO SAE: 10/AUG/2010
     Route: 065
     Dates: start: 20080218
  2. MABTHERA [Suspect]
     Indication: RHEUMATOID ARTHRITIS
     Dosage: DATE OF LAST DOSE PRIOR TO SAE: 10/AUG/2010
     Route: 065
     Dates: start: 20080101
  3. MABTHERA [Suspect]
     Dosage: DATE OF LAST DOSE PRIOR TO SAE: 10/AUG/2010
     Route: 065
     Dates: start: 20081101
  4. MABTHERA [Suspect]
     Dosage: DATE OF LAST DOSE PRIOR TO SAE: 10/AUG/2010
     Route: 065
     Dates: start: 20091001
  5. TALC [Concomitant]

REACTIONS (2)
  - DEATH [None]
  - PNEUMONIA [None]
